FAERS Safety Report 5542547-0 (Version None)
Quarter: 2007Q4

REPORT INFORMATION
  Report Type: 
  Country: None (occurrence: None)
  Receive Date: 20071123
  Receipt Date: 20070706
  Transmission Date: 20080405
  Serious: Yes (Other)
  Sender: FDA-Public Use
  Company Number: US-JNJFOC-20070701884

PATIENT
  Age: 82 Year
  Sex: Male
  Weight: 79.3795 kg

DRUGS (2)
  1. LEVAQUIN [Suspect]
     Indication: CYSTITIS
     Dosage: 250 MG, 1 IN 1 DAY, ORAL
     Route: 048
     Dates: start: 20070704, end: 20070705
  2. FLOMAX (TAMSULOSIN HYDROCHLORIDE) UNSPECIFIED [Concomitant]

REACTIONS (2)
  - DYSPNOEA [None]
  - LIP SWELLING [None]
